FAERS Safety Report 6255519-8 (Version None)
Quarter: 2009Q3

REPORT INFORMATION
  Report Type: 
  Country: None (occurrence: None)
  Receive Date: 20090702
  Receipt Date: 20090622
  Transmission Date: 20100115
  Serious: Yes (Disabling, Congenital Anomaly, Other)
  Sender: FDA-Public Use
  Company Number: CN-ABBOTT-09P-035-0581331-00

PATIENT
  Age: 1 Day
  Sex: Male

DRUGS (1)
  1. WARFARIN [Suspect]
     Indication: DRUG EXPOSURE DURING PREGNANCY
     Route: 064

REACTIONS (13)
  - CONGENITAL CENTRAL NERVOUS SYSTEM ANOMALY [None]
  - CONGENITAL CEREBROVASCULAR ANOMALY [None]
  - CONGENITAL NOSE MALFORMATION [None]
  - DEVELOPMENTAL DELAY [None]
  - DRUG EXPOSURE DURING PREGNANCY [None]
  - GAIT SPASTIC [None]
  - GROWTH RETARDATION [None]
  - HEPATOMEGALY [None]
  - HYDROCEPHALUS [None]
  - HYPERREFLEXIA [None]
  - HYPERTONIA [None]
  - INABILITY TO CRAWL [None]
  - MENTAL RETARDATION [None]
